FAERS Safety Report 5477811-7 (Version None)
Quarter: 2007Q4

REPORT INFORMATION
  Report Type: 
  Country: None (occurrence: None)
  Receive Date: 20071004
  Receipt Date: 20071001
  Transmission Date: 20080405
  Serious: Yes (Hospitalization)
  Sender: FDA-Public Use
  Company Number: FR-SANOFI-SYNTHELABO-F01200701177

PATIENT
  Sex: Male

DRUGS (5)
  1. FOLINIC ACID [Suspect]
     Dosage: UNK
     Route: 041
     Dates: start: 20051128, end: 20051128
  2. FLUOROURACIL [Suspect]
     Dosage: UNK
     Route: 041
     Dates: start: 20051128, end: 20051128
  3. CAMPTOSAR [Suspect]
     Route: 033
     Dates: start: 20051128, end: 20051128
  4. ELOXATIN [Suspect]
     Indication: PERITONEAL CARCINOMA
     Route: 033
     Dates: start: 20051128, end: 20051128
  5. AUGMENTIN '125' [Concomitant]
     Indication: PROPHYLAXIS
     Dosage: UNK

REACTIONS (2)
  - GASTRIC PERFORATION [None]
  - SEPTIC SHOCK [None]
